FAERS Safety Report 6144598-4 (Version None)
Quarter: 2009Q2

REPORT INFORMATION
  Report Type: 
  Country: None (occurrence: None)
  Receive Date: 20090406
  Receipt Date: 20090330
  Transmission Date: 20091009
  Serious: Yes (Death)
  Sender: FDA-Public Use
  Company Number: US-GENENTECH-280213

PATIENT

DRUGS (1)
  1. RITUXIMAB [Suspect]
     Indication: LYMPHOPROLIFERATIVE DISORDER
     Dosage: 375 MG/M2, 1/WEEK
     Route: 042

REACTIONS (2)
  - DEEP VEIN THROMBOSIS [None]
  - PULMONARY EMBOLISM [None]
